FAERS Safety Report 12269642 (Version 1)
Quarter: 2016Q2

REPORT INFORMATION
  Report Type: Spontaneous
  Country: US (occurrence: US)
  Receive Date: 20160414
  Receipt Date: 20160414
  Transmission Date: 20160815
  Serious: No
  Sender: FDA-Public Use
  Company Number: US-BAYER-2016-064745

PATIENT
  Age: 84 Year
  Sex: Female
  Weight: 53.52 kg

DRUGS (9)
  1. HYDROCODONE [Concomitant]
     Active Substance: HYDROCODONE
  2. COREG [Concomitant]
     Active Substance: CARVEDILOL
  3. ATORVASTATIN CALCIUM. [Concomitant]
     Active Substance: ATORVASTATIN CALCIUM
  4. ACETAMINOPHEN. [Concomitant]
     Active Substance: ACETAMINOPHEN
  5. VITAMIN C [ASCORBIC ACID] [Concomitant]
  6. BAYER LOW DOSE [Suspect]
     Active Substance: ASPIRIN
     Indication: ISCHAEMIC HEART DISEASE PROPHYLAXIS
  7. CLARITIN [Suspect]
     Active Substance: LORATADINE
     Indication: SEASONAL ALLERGY
     Dosage: 1 DF, QD
     Route: 048
     Dates: start: 201601, end: 201601
  8. LISINOPRIL. [Concomitant]
     Active Substance: LISINOPRIL
  9. TRAMADOL. [Concomitant]
     Active Substance: TRAMADOL

REACTIONS (5)
  - Vitreous floaters [None]
  - Vision blurred [None]
  - Ischaemic heart disease prophylaxis [None]
  - Product use issue [None]
  - Headache [None]

NARRATIVE: CASE EVENT DATE: 201601
